FAERS Safety Report 23075003 (Version 2)
Quarter: 2023Q4

REPORT INFORMATION
  Report Type: Report from Study
  Country: US (occurrence: US)
  Receive Date: 20231017
  Receipt Date: 20231102
  Transmission Date: 20240110
  Serious: Yes (Other)
  Sender: FDA-Public Use
  Company Number: US-ALNYLAM PHARMACEUTICALS, INC.-ALN-2023-005301

PATIENT

DRUGS (1)
  1. AMVUTTRA [Suspect]
     Active Substance: VUTRISIRAN
     Indication: Hereditary neuropathic amyloidosis
     Dosage: UNK
     Route: 065
     Dates: start: 20230120, end: 20231017

REACTIONS (7)
  - Cardiac failure congestive [Unknown]
  - Finger deformity [Unknown]
  - Foot deformity [Unknown]
  - Pain in extremity [Unknown]
  - Dyskinesia [Unknown]
  - Drug ineffective [Unknown]
  - Paraesthesia [Unknown]
